FAERS Safety Report 5476900-0 (Version None)
Quarter: 2007Q4

REPORT INFORMATION
  Report Type: 
  Country: None (occurrence: None)
  Receive Date: 20071004
  Receipt Date: 20070925
  Transmission Date: 20080405
  Serious: Yes (Life-Threatening)
  Sender: FDA-Public Use
  Company Number: HQWYE313025SEP07

PATIENT
  Sex: Male

DRUGS (1)
  1. CORDARONE [Suspect]
     Indication: ATRIAL FIBRILLATION
     Dosage: 300 MG ONCE
     Route: 042
     Dates: start: 20070809, end: 20070809

REACTIONS (7)
  - ABDOMINAL PAIN UPPER [None]
  - AGITATION [None]
  - CHOKING SENSATION [None]
  - DYSPNOEA [None]
  - ERYTHEMA [None]
  - HYPERHIDROSIS [None]
  - LOCALISED OEDEMA [None]
